FAERS Safety Report 5769559-6 (Version None)
Quarter: 2008Q2

REPORT INFORMATION
  Report Type: 
  Country: None (occurrence: None)
  Receive Date: 20080612
  Receipt Date: 20080402
  Transmission Date: 20081010
  Serious: No
  Sender: FDA-Public Use
  Company Number: US-ABBOTT-08P-163-0445118-00

PATIENT
  Sex: Female
  Weight: 78.996 kg

DRUGS (13)
  1. HUMIRA [Suspect]
     Indication: CROHN'S DISEASE
     Route: 058
     Dates: start: 20080201
  2. BENADRYL [Concomitant]
     Indication: INJECTION SITE REACTION
     Route: 048
     Dates: start: 20080325
  3. ACETAMINOPHEN [Concomitant]
     Indication: INJECTION SITE REACTION
     Route: 048
     Dates: start: 20080325
  4. PREDNISONE TAB [Concomitant]
     Indication: CROHN'S DISEASE
     Route: 048
     Dates: start: 20050401
  5. PREDNISONE TAB [Concomitant]
  6. ESOMEPRAZOLE MAGNESIUM [Concomitant]
     Indication: REFLUX GASTRITIS
     Route: 048
     Dates: start: 20080201
  7. LEVOTHYROXINE SODIUM [Concomitant]
     Indication: HYPOTHYROIDISM
     Route: 048
     Dates: start: 20060101
  8. FUROSEMIDE [Concomitant]
     Indication: POLYURIA
     Route: 048
     Dates: start: 20080201
  9. HYDROCHLOROTHIAZIDE [Concomitant]
     Indication: HYPERTENSION
     Route: 048
  10. DROSPIRENONE W/ETHINYLESTRADIOL [Concomitant]
     Indication: CONTRACEPTION
     Route: 048
  11. METFORMIN HCL [Concomitant]
     Indication: DRUG USE FOR UNKNOWN INDICATION
     Route: 048
  12. POTASSIUM CHLORIDE [Concomitant]
     Indication: MINERAL SUPPLEMENTATION
     Route: 048
     Dates: start: 20080201
  13. DICYCLOMINE HCL [Concomitant]
     Indication: GASTROINTESTINAL HYPOMOTILITY
     Route: 048

REACTIONS (9)
  - FEELING HOT [None]
  - HEADACHE [None]
  - INJECTION SITE ERYTHEMA [None]
  - INJECTION SITE IRRITATION [None]
  - INJECTION SITE NODULE [None]
  - INJECTION SITE PAPULE [None]
  - INJECTION SITE PRURITUS [None]
  - SINUSITIS [None]
  - SYNCOPE [None]
